FAERS Safety Report 19812066 (Version 1)
Quarter: 2021Q3

REPORT INFORMATION
  Report Type: Spontaneous
  Country: US (occurrence: US)
  Receive Date: 20210909
  Receipt Date: 20210909
  Transmission Date: 20211014
  Serious: No
  Sender: FDA-Public Use
  Company Number: US-GLENMARK PHARMACEUTICALS-2021GMK067127

PATIENT

DRUGS (3)
  1. ATOVAQUONE ORAL SUSPENSION USP [750 MG/5 ML] [Suspect]
     Active Substance: ATOVAQUONE
     Indication: BABESIOSIS
     Dosage: 5 MILLILITER, BID (EVERY 12 HOUR WITH FOOD)
     Route: 048
     Dates: start: 20210724
  2. AZITHROMYCIN ANHYDROUS. [Concomitant]
     Active Substance: AZITHROMYCIN ANHYDROUS
     Indication: BABESIOSIS
     Dosage: UNK
     Route: 065
  3. ROCEPHIN [Concomitant]
     Active Substance: CEFTRIAXONE SODIUM
     Indication: BABESIOSIS
     Dosage: UNK
     Route: 042

REACTIONS (4)
  - Product administration error [Unknown]
  - Product use in unapproved indication [Unknown]
  - Product temperature excursion issue [Unknown]
  - No adverse event [Unknown]

NARRATIVE: CASE EVENT DATE: 202107
